FAERS Safety Report 13974483 (Version 3)
Quarter: 2018Q1

REPORT INFORMATION
  Report Type: Report from Study
  Country: TR (occurrence: TR)
  Receive Date: 20170915
  Receipt Date: 20180130
  Transmission Date: 20180508
  Serious: Yes (Hospitalization)
  Sender: FDA-Public Use
  Company Number: TR-ROCHE-1990959

PATIENT
  Age: 53 Year
  Sex: Male
  Weight: 100 kg

DRUGS (10)
  1. BELOC ZOK [Concomitant]
     Active Substance: METOPROLOL SUCCINATE
     Indication: HYPERTENSION
     Route: 065
     Dates: start: 1995
  2. CAFFEINE. [Concomitant]
     Active Substance: CAFFEINE
     Indication: PAIN
     Route: 065
     Dates: start: 201702
  3. NORVASC [Concomitant]
     Active Substance: AMLODIPINE BESYLATE
     Indication: HYPERTENSION
     Route: 065
     Dates: start: 1995
  4. INSULIN [Concomitant]
     Active Substance: INSULIN NOS
     Indication: DIABETES MELLITUS
     Route: 065
     Dates: start: 2010
  5. PARACETAMOL [Concomitant]
     Active Substance: ACETAMINOPHEN
     Indication: PAIN
     Route: 065
     Dates: start: 201702
  6. DIDERAL [Concomitant]
     Active Substance: PROPRANOLOL HYDROCHLORIDE
     Indication: ANXIETY DISORDER
     Route: 065
     Dates: start: 2012
  7. STABLON [Concomitant]
     Active Substance: TIANEPTINE
     Indication: DEPRESSION
     Route: 065
     Dates: start: 2012
  8. GLIFOR [Concomitant]
     Active Substance: METFORMIN HYDROCHLORIDE
     Indication: DIABETES MELLITUS
     Route: 065
     Dates: start: 2005
  9. ATEZOLIZUMAB. [Suspect]
     Active Substance: ATEZOLIZUMAB
     Indication: NON-SMALL CELL LUNG CANCER STAGE IV
     Dosage: DOSE OF LAST ATEZOLIZUMAB ADMINISTERED WAS 1200 MG ON 05/SEP/2017
     Route: 042
     Dates: start: 20170815
  10. NUROFEN COLD + FLU [Concomitant]
     Indication: NASOPHARYNGITIS
     Route: 065
     Dates: start: 20170825, end: 20170829

REACTIONS (1)
  - Infusion related reaction [Recovered/Resolved]

NARRATIVE: CASE EVENT DATE: 20170905
